FAERS Safety Report 6390526-6 (Version None)
Quarter: 2009Q4

REPORT INFORMATION
  Report Type: 
  Country: None (occurrence: None)
  Receive Date: 20091006
  Receipt Date: 20090922
  Transmission Date: 20100525
  Serious: Yes (Death, Other)
  Sender: FDA-Public Use
  Company Number: IE-MYLANLABS-2009S1016652

PATIENT
  Age: 57 Year
  Sex: Female

DRUGS (5)
  1. PHENYTOIN [Suspect]
     Indication: CONVULSION
  2. CIPROFLOXACIN HYDROCHLORIDE [Concomitant]
     Indication: SEPTIC SHOCK
  3. METRONIDAZOLE [Concomitant]
     Indication: SEPTIC SHOCK
  4. AMPHOTERICIN B [Concomitant]
     Indication: SEPTIC SHOCK
  5. FUROSEMIDE [Concomitant]
     Dosage: ADMINISTERED INTERMITTENTLY IN SMALL DOSES

REACTIONS (1)
  - LINEAR IGA DISEASE [None]
